FAERS Safety Report 17797258 (Version 1)
Quarter: 2020Q2

REPORT INFORMATION
  Report Type: Spontaneous
  Country: US (occurrence: US)
  Receive Date: 20200517
  Receipt Date: 20200517
  Transmission Date: 20200714
  Serious: No
  Sender: FDA-Public Use
  Company Number: None

PATIENT
  Age: 40 Year
  Sex: Female

DRUGS (1)
  1. INFLECTRA [Suspect]
     Active Substance: INFLIXIMAB-DYYB
     Indication: PSORIATIC ARTHROPATHY
     Dosage: ?          OTHER FREQUENCY:Q8WEEKS;OTHER ROUTE:PIV?
     Dates: start: 20200319, end: 20200513

REACTIONS (4)
  - Dizziness [None]
  - Peripheral swelling [None]
  - Feeling cold [None]
  - Rash [None]

NARRATIVE: CASE EVENT DATE: 20200513
